FAERS Safety Report 23182302 (Version 3)
Quarter: 2023Q4

REPORT INFORMATION
  Report Type: Spontaneous
  Country: BE (occurrence: BE)
  Receive Date: 20231114
  Receipt Date: 20231130
  Transmission Date: 20240110
  Serious: Yes (Death, Life-Threatening, Hospitalization, Other)
  Sender: FDA-Public Use
  Company Number: BE-PFIZER INC-PV202300182534

PATIENT
  Age: 20 Year
  Sex: Female

DRUGS (23)
  1. TOFACITINIB CITRATE [Suspect]
     Active Substance: TOFACITINIB CITRATE
     Indication: Haemophagocytic lymphohistiocytosis
     Dosage: DAY 94
  2. TOFACITINIB CITRATE [Suspect]
     Active Substance: TOFACITINIB CITRATE
     Indication: Thrombotic microangiopathy
  3. METHYLPREDNISOLONE SODIUM SUCCINATE [Suspect]
     Active Substance: METHYLPREDNISOLONE SODIUM SUCCINATE
     Indication: Still^s disease
     Dosage: UNK
     Dates: start: 2019
  4. METHYLPREDNISOLONE SODIUM SUCCINATE [Suspect]
     Active Substance: METHYLPREDNISOLONE SODIUM SUCCINATE
     Indication: Generalised tonic-clonic seizure
     Dosage: UNK
     Dates: start: 2020
  5. METHYLPREDNISOLONE SODIUM SUCCINATE [Suspect]
     Active Substance: METHYLPREDNISOLONE SODIUM SUCCINATE
     Indication: Haemophagocytic lymphohistiocytosis
     Dosage: 500 MG, 3 DAYS
     Route: 042
  6. METHYLPREDNISOLONE SODIUM SUCCINATE [Suspect]
     Active Substance: METHYLPREDNISOLONE SODIUM SUCCINATE
     Dosage: 80 MG, HIGH-DOSE SOLUBLE
  7. ANAKINRA [Suspect]
     Active Substance: ANAKINRA
     Indication: Still^s disease
     Dosage: UNK
     Dates: start: 2019
  8. ANAKINRA [Suspect]
     Active Substance: ANAKINRA
     Dosage: UNK
     Dates: start: 2020
  9. TOCILIZUMAB [Suspect]
     Active Substance: TOCILIZUMAB
     Indication: Still^s disease
     Dosage: UNK
     Dates: start: 2019
  10. TOCILIZUMAB [Suspect]
     Active Substance: TOCILIZUMAB
     Dosage: UNK
     Dates: start: 2020
  11. COLCHICINE [Suspect]
     Active Substance: COLCHICINE
     Dosage: UNK
  12. CYCLOSPORINE [Suspect]
     Active Substance: CYCLOSPORINE
     Indication: Still^s disease
     Dosage: UNK
  13. CYCLOSPORINE [Suspect]
     Active Substance: CYCLOSPORINE
     Indication: Haemophagocytic lymphohistiocytosis
  14. ETOPOSIDE [Suspect]
     Active Substance: ETOPOSIDE
     Indication: Thrombotic microangiopathy
     Dosage: 8 ADMINISTRATIONS
  15. ETOPOSIDE [Suspect]
     Active Substance: ETOPOSIDE
     Indication: Haemophagocytic lymphohistiocytosis
     Dosage: RE-STARTED ON DAY 135
  16. DEXAMETHASONE [Suspect]
     Active Substance: DEXAMETHASONE
     Indication: Thrombotic microangiopathy
     Dosage: 20 MG, 2X/DAY
  17. DEXAMETHASONE [Suspect]
     Active Substance: DEXAMETHASONE
     Indication: Haemophagocytic lymphohistiocytosis
     Dosage: 2.5 MG, DAILY
  18. GANCICLOVIR [Suspect]
     Active Substance: GANCICLOVIR
     Indication: Cytomegalovirus viraemia
     Dosage: DAY 35-69 AND DAY 73-127)
  19. PIPERACILLIN AND TAZOBACTAM [Suspect]
     Active Substance: PIPERACILLIN SODIUM\TAZOBACTAM SODIUM
     Indication: Cytomegalovirus viraemia
     Dosage: DAY 142
  20. PIPERACILLIN AND TAZOBACTAM [Suspect]
     Active Substance: PIPERACILLIN SODIUM\TAZOBACTAM SODIUM
     Indication: Inflammatory marker increased
  21. EPOPROSTENOL [Concomitant]
     Active Substance: EPOPROSTENOL
     Indication: Cardiac failure
     Dosage: DAY 88
  22. MACITENTAN [Concomitant]
     Active Substance: MACITENTAN
     Indication: Cardiac failure
     Dosage: DAY 88
  23. TADALAFIL [Concomitant]
     Active Substance: TADALAFIL
     Indication: Cardiac failure
     Dosage: DAY 114

REACTIONS (2)
  - Off label use [Fatal]
  - Drug ineffective for unapproved indication [Fatal]
